FAERS Safety Report 17464043 (Version 1)
Quarter: 2020Q1

REPORT INFORMATION
  Report Type: Spontaneous
  Country: US (occurrence: US)
  Receive Date: 20200226
  Receipt Date: 20200226
  Transmission Date: 20200409
  Serious: No
  Sender: FDA-Public Use
  Company Number: US-MYLANLABS-2020M1017554

PATIENT
  Sex: Female
  Weight: 59 kg

DRUGS (4)
  1. FENTANYL TRANSDERMAL SYSTEM [Suspect]
     Active Substance: FENTANYL
     Indication: PRODUCT USED FOR UNKNOWN INDICATION
     Dosage: UNK
     Route: 062
  2. ZOPIDEM [Concomitant]
     Active Substance: ZOLPIDEM TARTRATE
     Dosage: 10 MILLIGRAM, HS
  3. OXYCODONE [Concomitant]
     Active Substance: OXYCODONE
     Dosage: 5 MILLIGRAM, TID
  4. ALPRAZOLAM. [Concomitant]
     Active Substance: ALPRAZOLAM
     Indication: ANXIETY
     Dosage: 1 MILLIGRAM

REACTIONS (1)
  - Wrong technique in product usage process [Unknown]
